FAERS Safety Report 20783179 (Version 1)
Quarter: 2022Q2

REPORT INFORMATION
  Report Type: Spontaneous
  Country: CN (occurrence: CN)
  Receive Date: 20220504
  Receipt Date: 20220504
  Transmission Date: 20220721
  Serious: Yes (Hospitalization)
  Sender: FDA-Public Use
  Company Number: CN-PFIZER INC-202200604793

PATIENT
  Age: 56 Year
  Sex: Male
  Weight: 67 kg

DRUGS (5)
  1. IRINOTECAN [Suspect]
     Active Substance: IRINOTECAN
     Indication: Metastases to lung
     Dosage: 320 MG, 1X/DAY
     Route: 041
     Dates: start: 20211231, end: 20211231
  2. FLUOROURACIL [Suspect]
     Active Substance: FLUOROURACIL
     Indication: Metastases to lung
     Dosage: 0.7 G, 1X/DAY
     Route: 041
     Dates: start: 20211231, end: 20211231
  3. FLUOROURACIL [Suspect]
     Active Substance: FLUOROURACIL
     Dosage: 4.25 G, ONCE EVERY 2 WEEKS (SEQUENTIAL)
     Dates: start: 20211231, end: 20211231
  4. LEUCOVORIN CALCIUM [Concomitant]
     Active Substance: LEUCOVORIN CALCIUM
     Indication: Metastases to lung
     Dosage: 700 MG, 1X/DAY
     Route: 041
     Dates: start: 20211231, end: 20211231
  5. ERBITUX [Concomitant]
     Active Substance: CETUXIMAB
     Indication: Metastases to lung
     Dosage: 900 MG, 1X/DAY
     Route: 041
     Dates: start: 20211231, end: 20211231

REACTIONS (2)
  - White blood cell count decreased [Recovering/Resolving]
  - Neutrophil count decreased [Recovering/Resolving]

NARRATIVE: CASE EVENT DATE: 20220112
